FAERS Safety Report 5578149-X (Version None)
Quarter: 2007Q4

REPORT INFORMATION
  Report Type: 
  Country: None (occurrence: None)
  Receive Date: 20071231
  Receipt Date: 20071219
  Transmission Date: 20080405
  Serious: Yes (Death)
  Sender: FDA-Public Use
  Company Number: GB-PFIZER INC-2007108001

PATIENT
  Age: 23 Year
  Sex: Male

DRUGS (4)
  1. CETIRIZINE HCL [Suspect]
  2. NEFOPAM [Suspect]
  3. VENLAFAXINE HCL [Suspect]
  4. CO-CODAMOL [Suspect]

REACTIONS (3)
  - CONVULSION [None]
  - FALL [None]
  - OVERDOSE [None]
